FAERS Safety Report 9306558 (Version 2)
Quarter: 2013Q2

REPORT INFORMATION
  Report Type: Spontaneous
  Country: US (occurrence: US)
  Receive Date: 20130523
  Receipt Date: 20130617
  Transmission Date: 20140414
  Serious: No
  Sender: FDA-Public Use
  Company Number: US-PFIZER INC-2013158694

PATIENT
  Age: 49 Year
  Sex: 0

DRUGS (6)
  1. CELEBREX [Suspect]
     Dosage: UNK
  2. DARVOCET [Suspect]
     Dosage: UNK
  3. ZANAFLEX [Suspect]
     Dosage: UNK
  4. TRAMADOL [Suspect]
     Dosage: UNK
  5. CODEINE [Suspect]
     Dosage: UNK
  6. CYMBALTA [Suspect]
     Dosage: UNK

REACTIONS (1)
  - Drug hypersensitivity [Unknown]
